FAERS Safety Report 18311499 (Version 2)
Quarter: 2020Q3

REPORT INFORMATION
  Report Type: Spontaneous
  Country: AU (occurrence: AU)
  Receive Date: 20200925
  Receipt Date: 20200930
  Transmission Date: 20201103
  Serious: Yes (Hospitalization, Other)
  Sender: FDA-Public Use
  Company Number: AU-PFIZER INC-2020367382

PATIENT
  Age: 76 Year
  Sex: Male
  Weight: 75 kg

DRUGS (4)
  1. LIDOCAINE HCL [Suspect]
     Active Substance: LIDOCAINE HYDROCHLORIDE
     Dosage: 20 ML, SINGLE
     Route: 040
  2. MIDAZOLAM. [Suspect]
     Active Substance: MIDAZOLAM
     Indication: SEDATION
     Dosage: 1 MG, SINGLE
     Route: 042
  3. FENTANYL CITRATE. [Suspect]
     Active Substance: FENTANYL CITRATE
     Indication: SEDATION
     Dosage: 50 UG, SINGLE
     Route: 042
  4. EPINEPHRINE. [Suspect]
     Active Substance: EPINEPHRINE
     Dosage: 1:200,000
     Route: 040

REACTIONS (8)
  - Atrial fibrillation [Recovering/Resolving]
  - Hypertension [Recovering/Resolving]
  - Respiratory failure [Recovering/Resolving]
  - Ventricular extrasystoles [Recovering/Resolving]
  - Haemodynamic instability [Recovering/Resolving]
  - Respiratory acidosis [Recovering/Resolving]
  - Nerve block [Recovering/Resolving]
  - Sedation complication [Recovering/Resolving]
